FAERS Safety Report 9266236 (Version 2)
Quarter: 2013Q2

REPORT INFORMATION
  Report Type: Spontaneous
  Country: US (occurrence: US)
  Receive Date: 20130502
  Receipt Date: 20130617
  Transmission Date: 20140414
  Serious: Yes (Hospitalization, Other)
  Sender: FDA-Public Use
  Company Number: US-009507513-1304USA017600

PATIENT
  Age: 69 Year
  Sex: Male

DRUGS (3)
  1. TEMODAR [Suspect]
     Indication: GLIOBLASTOMA
     Dosage: UNK
     Route: 048
     Dates: start: 201109, end: 201203
  2. FLOMAX (TAMSULOSIN HYDROCHLORIDE) [Concomitant]
  3. VASOTEC [Concomitant]

REACTIONS (2)
  - Glioblastoma [Recovering/Resolving]
  - Surgery [Recovering/Resolving]
